FAERS Safety Report 5704631-8 (Version None)
Quarter: 2008Q2

REPORT INFORMATION
  Report Type: 
  Country: None (occurrence: None)
  Receive Date: 20080409
  Receipt Date: 20080404
  Transmission Date: 20081010
  Serious: Yes (Hospitalization)
  Sender: FDA-Public Use
  Company Number: 20084858

PATIENT
  Sex: Female

DRUGS (2)
  1. LIORESAL [Suspect]
     Indication: MUSCLE SPASTICITY
     Dosage: MCG, DAILY, INTRATHECAL
     Route: 037
  2. UNSPECIFIED ORAL AND INTRAVENOUS ANTIBIOTICS [Concomitant]

REACTIONS (4)
  - HYPOTENSION [None]
  - MENTAL STATUS CHANGES [None]
  - SEPSIS [None]
  - URINARY TRACT INFECTION [None]
